FAERS Safety Report 10080297 (Version 1)
Quarter: 2014Q2

REPORT INFORMATION
  Report Type: Spontaneous
  Country: US (occurrence: US)
  Receive Date: 20140415
  Receipt Date: 20140415
  Transmission Date: 20141212
  Serious: No
  Sender: FDA-Public Use
  Company Number: US-GILEAD-2014-0099605

PATIENT
  Sex: Male

DRUGS (1)
  1. RANEXA [Suspect]
     Indication: CHEST PAIN
     Route: 065

REACTIONS (1)
  - Blood pressure decreased [Recovered/Resolved]
